FAERS Safety Report 23193878 (Version 3)
Quarter: 2024Q1

REPORT INFORMATION
  Report Type: Spontaneous
  Country: US (occurrence: US)
  Receive Date: 20231116
  Receipt Date: 20240227
  Transmission Date: 20240410
  Serious: No
  Sender: FDA-Public Use
  Company Number: US-SA-SAC20231114000555

PATIENT
  Age: 64 Year
  Sex: Male

DRUGS (2)
  1. DUPIXENT [Suspect]
     Active Substance: DUPILUMAB
     Indication: Asthma
     Dosage: 2 DF, 1X
     Route: 058
     Dates: start: 202309, end: 202309
  2. DUPIXENT [Suspect]
     Active Substance: DUPILUMAB
     Dosage: 300 MG, QOW
     Route: 058
     Dates: start: 2023

REACTIONS (7)
  - Sinus polyp [Unknown]
  - Dyspnoea [Unknown]
  - Respiration abnormal [Unknown]
  - Condition aggravated [Unknown]
  - Cough [Unknown]
  - Seasonal allergy [Unknown]
  - Allergy to plants [Unknown]

NARRATIVE: CASE EVENT DATE: 20230101
